FAERS Safety Report 18491557 (Version 1)
Quarter: 2020Q4

REPORT INFORMATION
  Report Type: Spontaneous
  Country: DE (occurrence: DE)
  Receive Date: 20201111
  Receipt Date: 20201111
  Transmission Date: 20210114
  Serious: Yes (Hospitalization)
  Sender: FDA-Public Use
  Company Number: DE-ROCHE-2709297

PATIENT
  Age: 53 Year
  Sex: Male

DRUGS (7)
  1. MAGNESIUM [Concomitant]
     Active Substance: MAGNESIUM
     Dosage: 150 MG, 1-0-1-0
  2. MOVICOL [Concomitant]
     Active Substance: POLYETHYLENE GLYCOL 3350\POTASSIUM CHLORIDE\SODIUM BICARBONATE\SODIUM CHLORIDE
     Dosage: 1-0-0-0
  3. METAMIZOLE [Concomitant]
     Active Substance: METAMIZOLE
     Dosage: BEDARF, TROPFEN
  4. PANTOPRAZOLE [Concomitant]
     Active Substance: PANTOPRAZOLE
     Dosage: 40 MG, 1-0-1-0
  5. THIAMIN [Concomitant]
     Active Substance: THIAMINE
     Dosage: 100 MG, 1-0-1-0
  6. DIAZEPAM. [Suspect]
     Active Substance: DIAZEPAM
     Indication: PRODUCT USED FOR UNKNOWN INDICATION
     Dosage: 5 MG, REQUIREMENT
     Route: 065
  7. METOPROLOL. [Concomitant]
     Active Substance: METOPROLOL
     Dosage: 47.5 MG, 1-0-1-0

REACTIONS (8)
  - Restlessness [Unknown]
  - Presyncope [Unknown]
  - Vomiting [Unknown]
  - Headache [Unknown]
  - Chest discomfort [Unknown]
  - Dizziness [Unknown]
  - Anxiety [Unknown]
  - Product prescribing error [Unknown]
